FAERS Safety Report 20952149 (Version 3)
Quarter: 2022Q3

REPORT INFORMATION
  Report Type: Spontaneous
  Country: US (occurrence: US)
  Receive Date: 20220613
  Receipt Date: 20220729
  Transmission Date: 20221027
  Serious: No
  Sender: FDA-Public Use
  Company Number: US-PFIZER INC-202200755346

PATIENT
  Age: 82 Year
  Sex: Female
  Weight: 74.39 kg

DRUGS (1)
  1. ESTRING [Suspect]
     Active Substance: ESTRADIOL
     Dosage: 2 MG, EVERY 3 MONTHS (VAGINALLY)
     Route: 067
     Dates: start: 2014

REACTIONS (2)
  - Poor quality device used [Unknown]
  - Device physical property issue [Unknown]
